FAERS Safety Report 7794363-7 (Version None)
Quarter: 2011Q4

REPORT INFORMATION
  Report Type: 
  Country: None (occurrence: None)
  Receive Date: 20111004
  Receipt Date: 20110928
  Transmission Date: 20120403
  Serious: Yes (Death, Hospitalization, Other)
  Sender: FDA-Public Use
  Company Number: ES-PFIZER INC-2011201211

PATIENT
  Age: 69 Year
  Sex: Male

DRUGS (10)
  1. IMATINIB MESILATE [Concomitant]
     Dosage: UNK
     Route: 048
     Dates: start: 20110301, end: 20110501
  2. OMEPRAZOLE [Concomitant]
     Dosage: UNK
  3. SUTENT [Suspect]
     Indication: GASTROINTESTINAL STROMAL TUMOUR
     Dosage: 50 MG, 1X/DAY, 4 WEEKS ON / 2 WEEKS OFF
     Route: 048
     Dates: start: 20110506, end: 20110523
  4. IMATINIB MESILATE [Concomitant]
     Indication: GASTROINTESTINAL STROMAL TUMOUR
     Dosage: UNK
     Route: 048
     Dates: start: 20090929, end: 20110301
  5. DILTIAZEM [Concomitant]
     Dosage: UNK
  6. ALLOPURINOL [Concomitant]
     Dosage: UNK MG, UNK
  7. FUROSEMIDE [Concomitant]
     Dosage: UNK
  8. BEMIPARIN [Concomitant]
     Dosage: UNK
     Route: 058
  9. DOMPERIDONE [Concomitant]
     Indication: VOMITING
     Dosage: 10 MG, 3X/DAY
  10. SPIRONOLACTONE [Concomitant]
     Dosage: UNK

REACTIONS (5)
  - ENCEPHALITIS [None]
  - ECCHYMOSIS [None]
  - BLOOD LACTATE DEHYDROGENASE INCREASED [None]
  - HYPERBILIRUBINAEMIA [None]
  - THROMBOCYTOPENIA [None]
